FAERS Safety Report 9009646 (Version 3)
Quarter: 2013Q1

REPORT INFORMATION
  Report Type: Report from Study
  Country: CA (occurrence: CA)
  Receive Date: 20130110
  Receipt Date: 20130115
  Transmission Date: 20140127
  Serious: Yes (Other)
  Sender: FDA-Public Use
  Company Number: CA-ROCHE-1091968

PATIENT
  Sex: Male

DRUGS (5)
  1. VEMURAFENIB [Suspect]
     Indication: METASTATIC MALIGNANT MELANOMA
     Route: 048
     Dates: start: 201206
  2. VEMURAFENIB [Suspect]
     Route: 048
     Dates: start: 201207, end: 20130103
  3. SERTRALINE [Concomitant]
     Indication: DEPRESSION
  4. ZOFRAN [Concomitant]
     Indication: NAUSEA
     Route: 048
  5. TYLENOL [Concomitant]
     Indication: PYREXIA

REACTIONS (3)
  - Rash generalised [Recovering/Resolving]
  - Disease progression [Not Recovered/Not Resolved]
  - Neoplasm [Not Recovered/Not Resolved]
